FAERS Safety Report 8204640-3 (Version None)
Quarter: 2012Q1

REPORT INFORMATION
  Report Type: 
  Country: None (occurrence: None)
  Receive Date: 20120313
  Receipt Date: 20120229
  Transmission Date: 20120608
  Serious: No
  Sender: FDA-Public Use
  Company Number: US-ELI_LILLY_AND_COMPANY-US201009007626

PATIENT
  Sex: Female
  Weight: 51.7 kg

DRUGS (4)
  1. FORTEO [Suspect]
     Dosage: 20 UG, QD
     Route: 058
  2. FORTEO [Suspect]
     Dosage: 20 UG, DAILY (1/D)
     Route: 058
  3. FORTEO [Suspect]
     Dosage: 20 UG, DAILY (1/D)
     Route: 058
     Dates: start: 20100801
  4. FORTEO [Suspect]
     Indication: OSTEOPOROSIS
     Dosage: 20 UG, DAILY (1/D)
     Route: 058
     Dates: end: 20091201

REACTIONS (8)
  - PAIN IN EXTREMITY [None]
  - CATARACT [None]
  - AMNESIA [None]
  - VISUAL IMPAIRMENT [None]
  - ECONOMIC PROBLEM [None]
  - MUSCULOSKELETAL CHEST PAIN [None]
  - FALL [None]
  - MUSCLE SPASMS [None]
